FAERS Safety Report 10266368 (Version 2)
Quarter: 2014Q2

REPORT INFORMATION
  Report Type: Spontaneous
  Country: DE (occurrence: DE)
  Receive Date: 20140628
  Receipt Date: 20140628
  Transmission Date: 20141212
  Serious: Yes (Hospitalization, Other)
  Sender: FDA-Public Use
  Company Number: DE-009507513-1405DEU012631

PATIENT
  Age: 16 Year
  Sex: Male
  Weight: 80 kg

DRUGS (2)
  1. INTRONA [Suspect]
     Indication: MALIGNANT MELANOMA
     Dosage: TOTAL DAILY DOSE AS KIRKWOOD SCHEME
     Dates: start: 20091208, end: 20101104
  2. ACETAMINOPHEN [Concomitant]
     Indication: INFLUENZA LIKE ILLNESS
     Dosage: UNK
     Dates: start: 200912, end: 201011

REACTIONS (11)
  - Nephropathy toxic [Recovered/Resolved]
  - Adverse event [Recovered/Resolved]
  - Hyperuricaemia [Recovered/Resolved]
  - Thrombocytopenia [Recovered/Resolved]
  - Leukopenia [Recovered/Resolved]
  - Photosensitivity reaction [Recovered/Resolved]
  - Hepatotoxicity [Recovered/Resolved]
  - Suicidal ideation [Unknown]
  - Depression [Recovering/Resolving]
  - Hypertriglyceridaemia [Recovered/Resolved]
  - Fatigue [Recovered/Resolved]
